FAERS Safety Report 25187599 (Version 1)
Quarter: 2025Q2

REPORT INFORMATION
  Report Type: Other
  Country: FR (occurrence: FR)
  Receive Date: 20250411
  Receipt Date: 20250411
  Transmission Date: 20250717
  Serious: Yes (Hospitalization)
  Sender: ZYDUS PHARM
  Company Number: None

PATIENT

DRUGS (4)
  1. BISOPROLOL [Suspect]
     Active Substance: BISOPROLOL
     Indication: Product used for unknown indication
     Route: 048
     Dates: start: 20241220
  2. FUROSEMIDE [Suspect]
     Active Substance: FUROSEMIDE
     Indication: Renal failure
     Route: 042
     Dates: start: 20241223, end: 20250111
  3. FUROSEMIDE [Suspect]
     Active Substance: FUROSEMIDE
     Route: 048
     Dates: start: 20250112
  4. FOLIC ACID [Suspect]
     Active Substance: FOLIC ACID
     Indication: Product used for unknown indication
     Route: 048
     Dates: start: 20250116

REACTIONS (1)
  - Erythema [Recovering/Resolving]

NARRATIVE: CASE EVENT DATE: 20250215
